FAERS Safety Report 5934770-8 (Version None)
Quarter: 2008Q4

REPORT INFORMATION
  Report Type: 
  Country: None (occurrence: None)
  Receive Date: 20081029
  Receipt Date: 20081027
  Transmission Date: 20090506
  Serious: Yes (Death)
  Sender: FDA-Public Use
  Company Number: US-ROXANE LABORATORIES, INC.-2008-RO-00169RO

PATIENT
  Age: 57 Year
  Sex: Male

DRUGS (2)
  1. METHADONE HCL [Suspect]
     Indication: PAIN
  2. METHADONE HCL [Suspect]
     Indication: SPINAL CORD INJURY

REACTIONS (1)
  - SUDDEN DEATH [None]
